FAERS Safety Report 6048611-4 (Version None)
Quarter: 2009Q1

REPORT INFORMATION
  Report Type: 
  Country: None (occurrence: None)
  Receive Date: 20090121
  Receipt Date: 20090121
  Transmission Date: 20090719
  Serious: No
  Sender: FDA-Public Use
  Company Number: None

PATIENT
  Age: 44 Year
  Sex: Female
  Weight: 49.8957 kg

DRUGS (1)
  1. ALPRAZALAM .50 [Suspect]
     Indication: PANIC ATTACK
     Dosage: .05 2 X'S A DAY PO
     Route: 048
     Dates: start: 20030601, end: 20080101

REACTIONS (2)
  - MEMORY IMPAIRMENT [None]
  - MENTAL IMPAIRMENT [None]
